FAERS Safety Report 22136482 (Version 1)
Quarter: 2023Q1

REPORT INFORMATION
  Report Type: Spontaneous
  Country: GB (occurrence: None)
  Receive Date: 20230324
  Receipt Date: 20230324
  Transmission Date: 20230417
  Serious: Yes (Other)
  Sender: FDA-Public Use
  Company Number: 2023A067495

PATIENT
  Age: 56 Year
  Sex: Male
  Weight: 152 kg

DRUGS (15)
  1. DAPAGLIFLOZIN [Suspect]
     Active Substance: DAPAGLIFLOZIN
     Route: 048
     Dates: start: 20221216
  2. AMOXICILLIN [Concomitant]
     Active Substance: AMOXICILLIN
     Dates: start: 20230309, end: 20230316
  3. CLARITHROMYCIN [Concomitant]
     Active Substance: CLARITHROMYCIN
     Dates: start: 20221222, end: 20221227
  4. DOXYCYCLINE [Concomitant]
     Active Substance: DOXYCYCLINE
     Dosage: FOR RESCUE IF INFECTION PRESENT OR TAKE TWO IMM...
     Dates: start: 20201216
  5. FLUCLOXACILLIN [Concomitant]
     Active Substance: FLUCLOXACILLIN
     Dates: start: 20230228, end: 20230307
  6. FUROSEMIDE [Concomitant]
     Active Substance: FUROSEMIDE
     Dates: start: 20221115
  7. FUSIDIC ACID [Concomitant]
     Active Substance: FUSIDIC ACID
     Dosage: APPLY TO THE AFFECTED SKIN AREA
     Route: 061
     Dates: start: 20230309, end: 20230310
  8. MICONAZOLE [Concomitant]
     Active Substance: MICONAZOLE
     Dosage: APPLY TO THE AFFECTED AREA
     Route: 061
     Dates: start: 20230308
  9. NAPROXEN [Concomitant]
     Active Substance: NAPROXEN
     Dosage: UP TO TWICE DAILY
     Dates: start: 20230210, end: 20230224
  10. OMEPRAZOLE [Concomitant]
     Active Substance: OMEPRAZOLE
     Dates: start: 20221212
  11. PREDNISOLONE [Concomitant]
     Active Substance: PREDNISOLONE
     Dosage: AS RESCUE THERAPY FOR EXAC...
     Dates: start: 20201216
  12. RAMIPRIL [Concomitant]
     Active Substance: RAMIPRIL
     Dates: start: 20220810
  13. OLODATEROL HYDROCHLORIDE\TIOTROPIUM BROMIDE MONOHYDRATE [Concomitant]
     Active Substance: OLODATEROL HYDROCHLORIDE\TIOTROPIUM BROMIDE MONOHYDRATE
     Dosage: PUFFS
     Dates: start: 20221212
  14. METFORMIN HYDROCHLORIDE [Concomitant]
     Active Substance: METFORMIN HYDROCHLORIDE
     Indication: Diabetes mellitus
     Dosage: WITH FOOD
     Dates: start: 20221212
  15. VENTOLIN [Concomitant]
     Active Substance: ALBUTEROL SULFATE
     Route: 055
     Dates: start: 20220810

REACTIONS (1)
  - Genital rash [Recovering/Resolving]
